FAERS Safety Report 8970830 (Version 2)
Quarter: 2013Q1

REPORT INFORMATION
  Report Type: Spontaneous
  Country: US (occurrence: US)
  Receive Date: 20121218
  Receipt Date: 20130218
  Transmission Date: 20140127
  Serious: Yes (Death, Hospitalization)
  Sender: FDA-Public Use
  Company Number: US-NOVOPROD-366709

PATIENT
  Age: 65 Year
  Sex: Female
  Weight: 131.52 kg

DRUGS (11)
  1. VICTOZA [Suspect]
     Indication: TYPE 2 DIABETES MELLITUS
     Dosage: 0.6 MG, QD
     Route: 058
     Dates: start: 20120221
  2. VICTOZA [Suspect]
     Dosage: 1.2 MG, QD
     Route: 058
  3. VICTOZA [Suspect]
     Dosage: 1.8 MG, QD
     Route: 058
  4. LYRICA [Concomitant]
     Indication: NEUROPATHY PERIPHERAL
     Dosage: 50 MG, BID
     Route: 048
  5. NOVOLOG FLEXPEN [Concomitant]
     Indication: TYPE 2 DIABETES MELLITUS
     Dosage: 50 U, TID, BEFORE MEALS
     Route: 058
  6. SIMVASTATIN [Concomitant]
     Indication: HYPERCHOLESTEROLAEMIA
     Dosage: 20 MG, QD
     Route: 048
  7. LOSARTAN [Concomitant]
     Indication: HYPERTENSION
     Dosage: 100 MG, QD
     Route: 048
  8. COUMADIN                           /00014802/ [Concomitant]
     Indication: COAGULOPATHY
     Dosage: 35 MG, QW
     Route: 058
  9. LEVEMIR [Concomitant]
     Indication: TYPE 2 DIABETES MELLITUS
     Dosage: 80 U, QD
     Route: 058
  10. METFORMIN [Concomitant]
     Indication: TYPE 2 DIABETES MELLITUS
     Dosage: 1000 MG, BID
     Route: 048
  11. ASA [Concomitant]
     Indication: CEREBROVASCULAR ACCIDENT PROPHYLAXIS
     Dosage: 81 MG, QD
     Route: 048

REACTIONS (1)
  - Cerebral haemorrhage [Fatal]
